FAERS Safety Report 24754202 (Version 2)
Quarter: 2025Q1

REPORT INFORMATION
  Report Type: Spontaneous
  Country: US (occurrence: US)
  Receive Date: 20241219
  Receipt Date: 20250116
  Transmission Date: 20250409
  Serious: Yes (Hospitalization)
  Sender: BAYER HEALTHCARE PHARMACEUTICALS INC.
  Company Number: US-BAYER-2024A179052

PATIENT
  Age: 57 Year
  Sex: Female
  Weight: 63.492 kg

DRUGS (4)
  1. GADAVIST [Suspect]
     Active Substance: GADOBUTROL
     Indication: Diagnostic procedure
     Route: 042
     Dates: start: 20241213, end: 20241213
  2. GADAVIST [Suspect]
     Active Substance: GADOBUTROL
     Indication: Renal scan
  3. LUNESTA [Concomitant]
     Active Substance: ESZOPICLONE
     Dates: start: 20241212
  4. TYLENOL [Concomitant]
     Active Substance: ACETAMINOPHEN
     Dates: start: 20241212

REACTIONS (9)
  - Swelling face [Recovered/Resolved]
  - Head discomfort [Recovered/Resolved]
  - Pain in jaw [Recovered/Resolved]
  - Hypertension [Recovered/Resolved]
  - Throat tightness [Recovered/Resolved]
  - Pruritus [Recovered/Resolved]
  - Paranasal sinus discomfort [Recovered/Resolved]
  - Eye pain [Recovered/Resolved]
  - Urticaria [Recovered/Resolved]

NARRATIVE: CASE EVENT DATE: 20241213
